FAERS Safety Report 7583013-0 (Version None)
Quarter: 2011Q2

REPORT INFORMATION
  Report Type: 
  Country: None (occurrence: None)
  Receive Date: 20110630
  Receipt Date: 20110617
  Transmission Date: 20111010
  Serious: Yes (Hospitalization)
  Sender: FDA-Public Use
  Company Number: JP-BRISTOL-MYERS SQUIBB COMPANY-15864515

PATIENT

DRUGS (2)
  1. PARAPLATIN [Suspect]
     Indication: HEAD AND NECK CANCER
  2. CISPLATIN [Suspect]

REACTIONS (1)
  - RENAL FAILURE ACUTE [None]
